FAERS Safety Report 7316182-8 (Version None)
Quarter: 2011Q1

REPORT INFORMATION
  Report Type: 
  Country: None (occurrence: None)
  Receive Date: 20110225
  Receipt Date: 20110216
  Transmission Date: 20110831
  Serious: Yes (Hospitalization)
  Sender: FDA-Public Use
  Company Number: US-ASTRAZENECA-2011SE09175

PATIENT
  Age: 59 Year
  Sex: Female

DRUGS (7)
  1. METOPROLOL SUCCINATE [Concomitant]
  2. CRESTOR [Suspect]
     Indication: HYPERCHOLESTEROLAEMIA
     Route: 048
     Dates: end: 20090101
  3. METFORMIN HCL [Concomitant]
  4. PREMARIN [Concomitant]
  5. NEXIUM [Suspect]
     Indication: ULCER
     Route: 048
     Dates: start: 20080101
  6. NEXIUM [Suspect]
     Route: 048
  7. PLAVIX [Concomitant]

REACTIONS (5)
  - PEPTIC ULCER REACTIVATED [None]
  - TRANSFUSION [None]
  - DRUG EFFECT DECREASED [None]
  - CARDIAC OPERATION [None]
  - MUSCLE SPASMS [None]
